FAERS Safety Report 14700063 (Version 1)
Quarter: 2018Q1

REPORT INFORMATION
  Report Type: Spontaneous
  Country: US (occurrence: US)
  Receive Date: 20180330
  Receipt Date: 20180330
  Transmission Date: 20180509
  Serious: No
  Sender: FDA-Public Use
  Company Number: US-009507513-1803USA011079

PATIENT
  Sex: Male

DRUGS (1)
  1. KEYTRUDA [Suspect]
     Active Substance: PEMBROLIZUMAB
     Indication: CENTRAL NERVOUS SYSTEM NEOPLASM
     Dosage: `200 MG, Q3W

REACTIONS (2)
  - Drug effect variable [Unknown]
  - Product use in unapproved indication [Unknown]
